FAERS Safety Report 7377763-9 (Version None)
Quarter: 2011Q1

REPORT INFORMATION
  Report Type: 
  Country: None (occurrence: None)
  Receive Date: 20110328
  Receipt Date: 20110325
  Transmission Date: 20110831
  Serious: Yes (Hospitalization)
  Sender: FDA-Public Use
  Company Number: GB-PFIZER INC-2004084879

PATIENT
  Age: 38 Year
  Sex: Male
  Weight: 55 kg

DRUGS (4)
  1. VORICONAZOLE [Suspect]
     Indication: GASTROINTESTINAL CANDIDIASIS
     Dosage: 200 MG, 2X/DAY
     Route: 048
     Dates: start: 20040820, end: 20040915
  2. OMEPRAZOLE [Interacting]
     Indication: DYSPEPSIA
  3. OMEPRAZOLE [Interacting]
     Indication: FUNGAL INFECTION
     Dosage: 400 MG, 2X/DAY
     Route: 065
     Dates: start: 20040815
  4. DOMPERIDONE [Concomitant]
     Route: 065
     Dates: start: 20040815

REACTIONS (8)
  - PERICARDIAL EFFUSION [None]
  - DRUG LEVEL INCREASED [None]
  - LEFT VENTRICULAR DYSFUNCTION [None]
  - COLLAPSE OF LUNG [None]
  - NEUTROPENIA [None]
  - BLOOD ALKALINE PHOSPHATASE INCREASED [None]
  - SUPRAVENTRICULAR TACHYCARDIA [None]
  - DRUG INTERACTION [None]
